FAERS Safety Report 4820698-3 (Version None)
Quarter: 2005Q4

REPORT INFORMATION
  Report Type: 
  Country: None (occurrence: None)
  Receive Date: 20051103
  Receipt Date: 20051018
  Transmission Date: 20060501
  Serious: Yes (Hospitalization)
  Sender: FDA-Public Use
  Company Number: 2005-0008879

PATIENT
  Age: 61 Year
  Sex: Male

DRUGS (1)
  1. HEPSERA [Suspect]
     Indication: HEPATITIS B
     Dosage: 10 MG 1 IN 1D ORAL
     Route: 048

REACTIONS (7)
  - ALANINE AMINOTRANSFERASE INCREASED [None]
  - DRUG RESISTANCE [None]
  - INTERNATIONAL NORMALISED RATIO DECREASED [None]
  - OESOPHAGEAL VARICES HAEMORRHAGE [None]
  - REBOUND EFFECT [None]
  - VIRAL INFECTION [None]
  - VIRAL MUTATION IDENTIFIED [None]
